FAERS Safety Report 8886861 (Version 2)
Quarter: 2013Q1

REPORT INFORMATION
  Report Type: Spontaneous
  Country: US (occurrence: US)
  Receive Date: 20121105
  Receipt Date: 20130130
  Transmission Date: 20140127
  Serious: Yes (Other)
  Sender: FDA-Public Use
  Company Number: US-ELI_LILLY_AND_COMPANY-US201210009869

PATIENT
  Sex: Male
  Weight: 69.2 kg

DRUGS (5)
  1. HUMATROPE [Suspect]
     Indication: PRADER-WILLI SYNDROME
     Dosage: 2.4 MG, 6 TIMES PER WEEK
     Route: 058
     Dates: start: 200302
  2. HUMATROPE [Suspect]
     Dosage: 2.3 MG, OTHER
     Route: 058
  3. HUMATROPE [Suspect]
     Dosage: 2.2 MG, 6 TIMES PER WEEK
     Route: 058
  4. CLONIDINE [Concomitant]
  5. ABILIFY [Concomitant]

REACTIONS (2)
  - Convulsion [Recovered/Resolved]
  - Off label use [Not Recovered/Not Resolved]
